APPROVED DRUG PRODUCT: DAYBUE
Active Ingredient: TROFINETIDE
Strength: 200MG/ML
Dosage Form/Route: SOLUTION;ORAL
Application: N217026 | Product #001
Applicant: ACADIA PHARMACEUTICALS INC
Approved: Mar 10, 2023 | RLD: Yes | RS: Yes | Type: RX

PATENTS:
Patent 12492167 | Expires: Jul 12, 2042
Patent 9212204 | Expires: Jan 27, 2032
Patent 11827600 | Expires: Jul 12, 2042
Patent 11370755 | Expires: Aug 3, 2040

EXCLUSIVITY:
Code: NCE | Date: Mar 10, 2028
Code: ODE-425 | Date: Mar 10, 2030